FAERS Safety Report 4492259-X (Version None)
Quarter: 2004Q3

REPORT INFORMATION
  Report Type: 
  Country: None (occurrence: None)
  Receive Date: 20040920
  Receipt Date: 20040326
  Transmission Date: 20050211
  Serious: Yes (Other)
  Sender: FDA-Public Use
  Company Number: 04-100-0092

PATIENT
  Sex: Female

DRUGS (3)
  1. DOXORUBICIN INJ. 200 MG/100ML, BEN VENUE LABS [Suspect]
     Dosage: 95MG IV
     Route: 042
     Dates: start: 20040301
  2. CHOP [Concomitant]
  3. RITUXAN [Concomitant]

REACTIONS (1)
  - EXTRAVASATION [None]
